FAERS Safety Report 8346603-3 (Version None)
Quarter: 2012Q2

REPORT INFORMATION
  Report Type: 
  Country: None (occurrence: None)
  Receive Date: 20120509
  Receipt Date: 20120503
  Transmission Date: 20120825
  Serious: Yes (Hospitalization, Other)
  Sender: FDA-Public Use
  Company Number: PHHY2011CA38467

PATIENT
  Sex: Female

DRUGS (9)
  1. HYDREA [Concomitant]
     Dosage: 1500 MG, QD
     Route: 048
  2. VITAMIN TAB [Concomitant]
  3. AGRYLIN [Concomitant]
     Dosage: 0.5 MG, QD
     Route: 048
  4. BLOOD TRANSFUSION, AUXILIARY PRODUCTS [Concomitant]
     Dosage: 3 U
  5. ALLOPURINOL [Concomitant]
     Dosage: 300 MG, QD
     Route: 048
  6. CHEMOTHERAPEUTICS NOS [Concomitant]
  7. EXJADE [Suspect]
     Indication: MYELODYSPLASTIC SYNDROME
     Dosage: 1250 MG, QD
     Route: 048
     Dates: start: 20110101
  8. BLOOD TRANSFUSION, AUXILIARY PRODUCTS [Concomitant]
     Dosage: 2 U EVERY 2 WEEKS
  9. URSO 250 [Concomitant]
     Dosage: 250 MG, QD
     Route: 048

REACTIONS (9)
  - PYREXIA [None]
  - FALL [None]
  - FATIGUE [None]
  - URINARY TRACT INFECTION [None]
  - SERUM FERRITIN INCREASED [None]
  - CORONARY ARTERY OCCLUSION [None]
  - FEELING ABNORMAL [None]
  - JOINT SWELLING [None]
  - DYSGEUSIA [None]
